FAERS Safety Report 5007334-0 (Version None)
Quarter: 2006Q2

REPORT INFORMATION
  Report Type: 
  Country: None (occurrence: None)
  Receive Date: 20060517
  Receipt Date: 20060428
  Transmission Date: 20061013
  Serious: Yes (Other)
  Sender: FDA-Public Use
  Company Number: US200605001064

PATIENT
  Age: 40 Year
  Sex: Female

DRUGS (1)
  1. HUMALOG PEN [Suspect]
     Indication: DIABETES MELLITUS
     Dosage: SEE IMAGE, SUBCUTANEOUS
     Route: 058

REACTIONS (6)
  - BLOOD GLUCOSE FLUCTUATION [None]
  - GANGRENE [None]
  - INCORRECT DOSE ADMINISTERED [None]
  - LEG AMPUTATION [None]
  - OPEN WOUND [None]
  - PHARMACEUTICAL PRODUCT COMPLAINT [None]
